FAERS Safety Report 8114964-6 (Version None)
Quarter: 2012Q1

REPORT INFORMATION
  Report Type: 
  Country: None (occurrence: None)
  Receive Date: 20120206
  Receipt Date: 20120126
  Transmission Date: 20120608
  Serious: Yes (Hospitalization)
  Sender: FDA-Public Use
  Company Number: CA-BRISTOL-MYERS SQUIBB COMPANY-16306698

PATIENT
  Age: 66 Year
  Sex: Female

DRUGS (17)
  1. SYNTHROID [Concomitant]
  2. HYDROCHLOROTHIAZIDE [Concomitant]
  3. SUPRADOL [Concomitant]
  4. ORENCIA [Suspect]
     Indication: RHEUMATOID ARTHRITIS
     Dosage: LAST DOSE:25NOV2011,19-JAN-2012 INFUSION:25
     Route: 042
     Dates: start: 20100223
  5. OMEPRAZOLE [Concomitant]
  6. ASAPHEN [Concomitant]
  7. ACETAMINOPHEN [Concomitant]
  8. CALCIUM [Concomitant]
  9. LIPITOR [Concomitant]
  10. PREDNISONE TAB [Concomitant]
  11. LYRICA [Concomitant]
  12. FOLIC ACID [Concomitant]
  13. APO-HYDROXYQUINE [Concomitant]
  14. OXYBUTYNIN [Concomitant]
  15. OXYCONTIN [Concomitant]
  16. METHOTREXATE [Suspect]
     Dosage: ALSO TOOK 20 MG WEEKLY :PO
     Route: 048
  17. ACTONEL [Concomitant]

REACTIONS (3)
  - CHRONIC OBSTRUCTIVE PULMONARY DISEASE [None]
  - FATIGUE [None]
  - PRODUCTIVE COUGH [None]
